FAERS Safety Report 5160272-5 (Version None)
Quarter: 2006Q4

REPORT INFORMATION
  Report Type: 
  Country: None (occurrence: None)
  Receive Date: 20061129
  Receipt Date: 20020918
  Transmission Date: 20070319
  Serious: Yes (Hospitalization)
  Sender: FDA-Public Use
  Company Number: FR-GLAXOSMITHKLINE-B0280535A

PATIENT
  Sex: Female
  Weight: 2.9 kg

DRUGS (2)
  1. EPIVIR [Suspect]
     Indication: HIV INFECTION
     Route: 048
     Dates: start: 19971130
  2. RETROVIR [Suspect]
     Indication: HIV INFECTION
     Route: 048
     Dates: start: 19971130

REACTIONS (3)
  - HYPERKALAEMIA [None]
  - HYPERLACTACIDAEMIA [None]
  - NEUTROPENIA [None]
